FAERS Safety Report 4932111-6 (Version None)
Quarter: 2006Q1

REPORT INFORMATION
  Report Type: 
  Country: None (occurrence: None)
  Receive Date: 20060303
  Receipt Date: 20060214
  Transmission Date: 20060701
  Serious: Yes (Hospitalization)
  Sender: FDA-Public Use
  Company Number: US-ROCHE-436815

PATIENT
  Age: 46 Year
  Sex: Male
  Weight: 93.4 kg

DRUGS (16)
  1. ENFUVIRTIDE [Suspect]
     Route: 058
     Dates: start: 20060126, end: 20060201
  2. BLINDED UK-427,857 [Suspect]
     Indication: HIV INFECTION
     Route: 048
     Dates: start: 20060126
  3. BLINDED UK-427,857 [Suspect]
     Route: 048
  4. VALTREX [Concomitant]
     Route: 048
  5. TOPROL-XL [Concomitant]
     Route: 048
     Dates: start: 19980615
  6. LIPITOR [Concomitant]
     Route: 048
     Dates: start: 20000615
  7. VALSARTAN [Concomitant]
     Route: 048
     Dates: start: 20020615
  8. XANAX [Concomitant]
     Route: 048
     Dates: start: 20000615
  9. OXYCONTIN [Concomitant]
     Route: 048
     Dates: start: 20010615
  10. WARFARIN SODIUM [Concomitant]
     Route: 048
     Dates: start: 20050615
  11. PREVACID [Concomitant]
     Route: 048
     Dates: start: 20000615
  12. TAMSULOSIN HCL [Concomitant]
     Route: 048
     Dates: start: 20010615
  13. NEURONTIN [Concomitant]
     Route: 048
     Dates: start: 20010615
  14. TENOFOVIR [Concomitant]
     Route: 048
     Dates: start: 20060126
  15. KALETRA [Concomitant]
     Route: 048
     Dates: start: 20060126
  16. INVIRASE [Concomitant]
     Route: 048
     Dates: start: 20060126

REACTIONS (3)
  - HYPONATRAEMIA [None]
  - INCORRECT ROUTE OF DRUG ADMINISTRATION [None]
  - RHABDOMYOLYSIS [None]
